FAERS Safety Report 5352713-5 (Version None)
Quarter: 2007Q2

REPORT INFORMATION
  Report Type: 
  Country: None (occurrence: None)
  Receive Date: 20070611
  Receipt Date: 20070531
  Transmission Date: 20071010
  Serious: Yes (Hospitalization)
  Sender: FDA-Public Use
  Company Number: JP-ELI_LILLY_AND_COMPANY-JP200706000973

PATIENT
  Age: 74 Year
  Sex: Female
  Weight: 58 kg

DRUGS (7)
  1. RALOXIFENE HCL [Suspect]
     Indication: OSTEOPOROSIS POSTMENOPAUSAL
     Dosage: 60 MG, DAILY (1/D)
     Route: 048
     Dates: start: 20050427, end: 20070129
  2. ELCITONIN [Concomitant]
     Indication: OSTEOPOROSIS
     Dosage: 20 IU, WEEKLY (1/W)
     Route: 030
     Dates: start: 20021010, end: 20070129
  3. AMLODIN [Concomitant]
     Indication: HYPERTENSION
     Dosage: 5 MG, DAILY (1/D)
     Route: 048
  4. BLOPRESS [Concomitant]
     Indication: HYPERTENSION
     Dosage: 4 MG, DAILY (1/D)
     Route: 048
  5. SOFALCONE [Concomitant]
     Indication: GASTRIC ULCER
     Dosage: 100 MG, DAILY (1/D)
     Route: 048
  6. NICHI E-NATE [Concomitant]
     Indication: HYPERLIPIDAEMIA
     Dosage: 200 MG, DAILY (1/D)
     Route: 048
  7. VASOLAN [Concomitant]
     Indication: ANGINA PECTORIS
     Dosage: 80 MG, DAILY (1/D)
     Route: 048

REACTIONS (1)
  - RESPIRATORY DISORDER [None]
